FAERS Safety Report 24548171 (Version 1)
Quarter: 2024Q4

REPORT INFORMATION
  Report Type: Spontaneous
  Country: SG (occurrence: SG)
  Receive Date: 20241025
  Receipt Date: 20241025
  Transmission Date: 20250114
  Serious: Yes (Other)
  Sender: STRIDES
  Company Number: SG-STRIDES ARCOLAB LIMITED-2024SP013685

PATIENT

DRUGS (1)
  1. VANCOMYCIN [Suspect]
     Active Substance: VANCOMYCIN
     Indication: Staphylococcal bacteraemia
     Dosage: UNK
     Route: 065

REACTIONS (3)
  - Liver function test abnormal [Unknown]
  - Eosinophil count increased [Unknown]
  - Pyrexia [Unknown]
